FAERS Safety Report 14297928 (Version 2)
Quarter: 2021Q4

REPORT INFORMATION
  Report Type: Spontaneous
  Country: US (occurrence: US)
  Receive Date: 20171218
  Receipt Date: 20211117
  Transmission Date: 20220303
  Serious: Yes (Disabling, Other)
  Sender: FDA-Public Use
  Company Number: US-TEVA-2017-US-833607

PATIENT
  Age: 66 Year
  Sex: Female
  Weight: 76.66 kg

DRUGS (19)
  1. DOCETAXEL [Suspect]
     Active Substance: DOCETAXEL
     Indication: Breast cancer metastatic
     Dosage: 06 CYCLES, EVERY THREE WEEKS AND WAS TREATED WITH DOSAGE: 140-160MG
     Route: 042
     Dates: start: 20150401, end: 20150715
  2. DOCETAXEL [Suspect]
     Active Substance: DOCETAXEL
     Indication: Breast cancer metastatic
     Dosage: 06 CYCLES, EVERY THREE WEEKS AND WAS TREATED WITH DOSAGE: 140-160MG
     Route: 042
     Dates: start: 20150401, end: 20150715
  3. PERJETA [Suspect]
     Active Substance: PERTUZUMAB
     Indication: Breast cancer metastatic
     Route: 042
     Dates: start: 20150401, end: 20150715
  4. HERCEPTIN [Suspect]
     Active Substance: TRASTUZUMAB
     Indication: Breast cancer metastatic
     Route: 042
     Dates: start: 20150401
  5. CLONIDINE HYDROCHLORIDE [Concomitant]
     Active Substance: CLONIDINE HYDROCHLORIDE
     Route: 048
     Dates: start: 20150309
  6. DEXILANT [Concomitant]
     Active Substance: DEXLANSOPRAZOLE
     Dosage: DELAYED RELEASE CAPSULE
     Route: 048
     Dates: start: 20150309
  7. URSODIOL [Concomitant]
     Active Substance: URSODIOL
     Dates: start: 19930101
  8. VENLAFAXINE [Concomitant]
     Active Substance: VENLAFAXINE HYDROCHLORIDE
     Route: 048
     Dates: start: 20150309
  9. SANCUSO [Concomitant]
     Active Substance: GRANISETRON
     Dosage: 3.1 MG/24 HOUR
  10. PROCHLORPERAZINE MALEATE [Concomitant]
     Active Substance: PROCHLORPERAZINE MALEATE
  11. ONDANSETRON HCL [Concomitant]
     Active Substance: ONDANSETRON HYDROCHLORIDE
  12. EMLA [Concomitant]
     Active Substance: LIDOCAINE\PRILOCAINE
     Dosage: 2.5%-2.5%
     Route: 061
  13. NEULASTA [Concomitant]
     Active Substance: PEGFILGRASTIM
     Dosage: Q21D
  14. ZOLEDRONIC [Concomitant]
     Active Substance: ZOLEDRONIC ACID
     Dosage: Q21D
  15. DEXAMETHASONE [Concomitant]
     Active Substance: DEXAMETHASONE
     Route: 042
     Dates: start: 20150401
  16. DEXAMETHASONE [Concomitant]
     Active Substance: DEXAMETHASONE
     Route: 048
  17. ALOXI [Concomitant]
     Active Substance: PALONOSETRON HYDROCHLORIDE
     Dates: start: 20150401
  18. DIPHENHYDRAMINE HYDROCHLORIDE [Concomitant]
     Active Substance: DIPHENHYDRAMINE HYDROCHLORIDE
     Route: 048
     Dates: start: 20150401
  19. ACETAMINOPHEN [Concomitant]
     Active Substance: ACETAMINOPHEN
     Dates: start: 20150401

REACTIONS (19)
  - Alopecia areata [Not Recovered/Not Resolved]
  - Madarosis [Not Recovered/Not Resolved]
  - Neuropathy peripheral [Not Recovered/Not Resolved]
  - Hair texture abnormal [Not Recovered/Not Resolved]
  - Hair colour changes [Not Recovered/Not Resolved]
  - Nausea [Unknown]
  - Fatigue [Not Recovered/Not Resolved]
  - Sinusitis [Recovered/Resolved]
  - Insomnia [Unknown]
  - Taste disorder [Unknown]
  - Anaemia [Unknown]
  - Asthenia [Unknown]
  - Epistaxis [Recovered/Resolved]
  - Urinary tract infection [Recovered/Resolved]
  - Mucosal inflammation [Recovered/Resolved]
  - Lethargy [Unknown]
  - Nail disorder [Unknown]
  - Pyrexia [Recovered/Resolved]
  - Bone pain [Not Recovered/Not Resolved]

NARRATIVE: CASE EVENT DATE: 20150101
